FAERS Safety Report 15228272 (Version 1)
Quarter: 2018Q3

REPORT INFORMATION
  Report Type: Spontaneous
  Country: US (occurrence: US)
  Receive Date: 20180801
  Receipt Date: 20180801
  Transmission Date: 20181010
  Serious: Yes (Hospitalization)
  Sender: FDA-Public Use
  Company Number: US-MYLANLABS-2018M1056786

PATIENT
  Age: 46 Year
  Sex: Female

DRUGS (1)
  1. LITHIUM. [Suspect]
     Active Substance: LITHIUM
     Indication: BIPOLAR DISORDER
     Dosage: THREE TIMES DAILY FOR 7 YEARS
     Route: 065

REACTIONS (2)
  - Depression [Unknown]
  - Hypercalcaemia [Recovered/Resolved]
